FAERS Safety Report 15283344 (Version 1)
Quarter: 2018Q3

REPORT INFORMATION
  Report Type: Spontaneous
  Country: US (occurrence: US)
  Receive Date: 20180816
  Receipt Date: 20180816
  Transmission Date: 20181010
  Serious: No
  Sender: FDA-Public Use
  Company Number: US-PFIZER INC-2018325931

PATIENT
  Age: 24 Year
  Sex: Female

DRUGS (1)
  1. SOMAVERT [Suspect]
     Active Substance: PEGVISOMANT
     Dosage: 10 MG, DAILY
     Dates: start: 20160720

REACTIONS (5)
  - Blood potassium decreased [Unknown]
  - Headache [Unknown]
  - Insulin-like growth factor increased [Unknown]
  - Blood creatinine decreased [Unknown]
  - Blood prolactin abnormal [Unknown]

NARRATIVE: CASE EVENT DATE: 20170321
